FAERS Safety Report 6432479-8 (Version None)
Quarter: 2009Q4

REPORT INFORMATION
  Report Type: 
  Country: None (occurrence: None)
  Receive Date: 20091105
  Receipt Date: 20091027
  Transmission Date: 20100525
  Serious: Yes (Hospitalization)
  Sender: FDA-Public Use
  Company Number: 2009-04486

PATIENT
  Age: 56 Year
  Sex: Male

DRUGS (3)
  1. VELCADE [Suspect]
     Indication: MULTIPLE MYELOMA
     Dosage: INTRAVENOUS
     Route: 042
     Dates: start: 20091009
  2. DEXAMETHASONE [Suspect]
     Indication: MULTIPLE MYELOMA
  3. COUMADIN [Concomitant]

REACTIONS (3)
  - HICCUPS [None]
  - ILEUS [None]
  - PNEUMOPERITONEUM [None]
